FAERS Safety Report 9016915 (Version 1)
Quarter: 2013Q1

REPORT INFORMATION
  Report Type: Spontaneous
  Country: US (occurrence: US)
  Receive Date: 20130117
  Receipt Date: 20130117
  Transmission Date: 20140127
  Serious: Yes (Other)
  Sender: FDA-Public Use
  Company Number: US-009507513-1301USA004194

PATIENT
  Sex: Male

DRUGS (7)
  1. SINGULAIR [Suspect]
     Indication: ASTHMA
     Route: 048
  2. SINGULAIR [Suspect]
     Indication: UPPER RESPIRATORY TRACT INFLAMMATION
  3. [COMPOSITION UNSPECIFIED] [Suspect]
  4. MEDICON (DEXTROMETHORPHAN HYDROBROMIDE) [Suspect]
     Indication: UPPER RESPIRATORY TRACT INFLAMMATION
  5. MUCODYNE [Suspect]
     Route: 048
  6. MUCOSOLVAN [Suspect]
     Route: 048
  7. LEVOFLOXACIN [Suspect]
     Route: 048

REACTIONS (2)
  - Hepatic function abnormal [Unknown]
  - Chromaturia [Unknown]
